FAERS Safety Report 6510363-9 (Version None)
Quarter: 2009Q4

REPORT INFORMATION
  Report Type: 
  Country: None (occurrence: None)
  Receive Date: 20091222
  Receipt Date: 20090930
  Transmission Date: 20100525
  Serious: No
  Sender: FDA-Public Use
  Company Number: US-ASTRAZENECA-2009SE17096

PATIENT
  Sex: Female
  Weight: 68 kg

DRUGS (10)
  1. CRESTOR [Suspect]
     Route: 048
     Dates: start: 20090601, end: 20090801
  2. NEXIUM [Concomitant]
  3. ASPIRIN [Concomitant]
  4. SYNTHROID [Concomitant]
  5. FORTICAL [Concomitant]
  6. FOSAMAX [Concomitant]
  7. MULTI-VITAMINS [Concomitant]
  8. CITRACAL [Concomitant]
  9. LECITHIN [Concomitant]
  10. LOVAZA [Concomitant]

REACTIONS (3)
  - ASTHENIA [None]
  - FATIGUE [None]
  - PAIN IN EXTREMITY [None]
